FAERS Safety Report 24190863 (Version 1)
Quarter: 2024Q3

REPORT INFORMATION
  Report Type: Spontaneous
  Country: US (occurrence: None)
  Receive Date: 20240808
  Receipt Date: 20240808
  Transmission Date: 20241017
  Serious: Yes (Hospitalization)
  Sender: Public
  Company Number: None

PATIENT
  Sex: Male

DRUGS (10)
  1. TACROLIMUS [Suspect]
     Active Substance: TACROLIMUS
     Indication: Liver transplant
     Route: 048
     Dates: start: 20230203
  2. MYCOPHENOLIC ACID [Suspect]
     Active Substance: MYCOPHENOLIC ACID
     Indication: Liver transplant
     Route: 048
     Dates: start: 20240423
  3. ASPIRIN ADLT [Concomitant]
  4. FUROSEMIDE [Concomitant]
     Active Substance: FUROSEMIDE
  5. HYDROMORPHON [Concomitant]
  6. JANUVIA [Concomitant]
     Active Substance: SITAGLIPTIN PHOSPHATE
  7. LEVOTHYROXINE [Concomitant]
     Active Substance: LEVOTHYROXINE\LEVOTHYROXINE SODIUM
  8. MYCOPHENOLATE MOFETIL [Concomitant]
     Active Substance: MYCOPHENOLATE MOFETIL
  9. MYCOPHENOLATE MOFETIL [Concomitant]
  10. NOVOLIN R [Concomitant]
     Active Substance: INSULIN HUMAN

REACTIONS (1)
  - Knee operation [None]
